FAERS Safety Report 4974573-4 (Version None)
Quarter: 2006Q2

REPORT INFORMATION
  Report Type: 
  Country: None (occurrence: None)
  Receive Date: 20060410
  Receipt Date: 20060327
  Transmission Date: 20061013
  Serious: Yes (Other)
  Sender: FDA-Public Use
  Company Number: 2006047381

PATIENT
  Age: 75 Year
  Sex: Male

DRUGS (3)
  1. VIAGRA [Suspect]
     Indication: ERECTILE DYSFUNCTION
     Dosage: AS NECESSARY, ORAL; 4 YEARS AGO
     Route: 048
  2. SUNRYTHM (PILSICAINIDE HYDROCHLORIDE) [Concomitant]
  3. AMISALIN (PROCAINAMIDE HYDROCHLORIDE) [Concomitant]

REACTIONS (1)
  - DEMENTIA ALZHEIMER'S TYPE [None]
